FAERS Safety Report 10595363 (Version 1)
Quarter: 2014Q4

REPORT INFORMATION
  Report Type: Spontaneous
  Country: TR (occurrence: TR)
  Receive Date: 20141120
  Receipt Date: 20141120
  Transmission Date: 20150529
  Serious: Yes (Other)
  Sender: FDA-Public Use
  Company Number: TR-JNJFOC-20141104885

PATIENT
  Age: 25 Year
  Sex: Male

DRUGS (1)
  1. PALIPERIDONE PALMITATE [Suspect]
     Active Substance: PALIPERIDONE PALMITATE
     Indication: PSYCHOTIC DISORDER
     Route: 030

REACTIONS (7)
  - Liver function test abnormal [Recovering/Resolving]
  - Myalgia [Unknown]
  - Pyrexia [Unknown]
  - Diarrhoea [Unknown]
  - Hepatotoxicity [Unknown]
  - Nausea [Unknown]
  - Asthenia [Unknown]
